FAERS Safety Report 8867240 (Version 1)
Quarter: 2012Q4

REPORT INFORMATION
  Report Type: 
  Country: US (occurrence: US)
  Receive Date: 20121025
  Receipt Date: 20121025
  Transmission Date: 20130627
  Serious: No
  Sender: FDA-Public Use
  Company Number: US-AMGEN-USASP2012015558

PATIENT
  Age: 57 Year
  Sex: Female
  Weight: 32.65 kg

DRUGS (5)
  1. ENBREL [Suspect]
     Indication: PRODUCT USED FOR UNKNOWN INDICATION
     Dosage: 50 mg, 2 times/wk
     Route: 058
  2. METHOTREXATE [Concomitant]
     Dosage: 2.5 mg, UNK
  3. FOLIC ACID [Concomitant]
     Dosage: UNK
  4. HYDROCODONE W/HOMATROPINE [Concomitant]
     Dosage: UNK
  5. MELOXICAM [Concomitant]
     Dosage: 7.5 mg, UNK

REACTIONS (1)
  - Hyperkeratosis [Unknown]
